FAERS Safety Report 5046466-8 (Version None)
Quarter: 2006Q3

REPORT INFORMATION
  Report Type: 
  Country: None (occurrence: None)
  Receive Date: 20060710
  Receipt Date: 20060609
  Transmission Date: 20061208
  Serious: Yes (Other)
  Sender: FDA-Public Use
  Company Number: AU-ROCHE-451147

PATIENT
  Age: 34 Year
  Sex: Female
  Weight: 58 kg

DRUGS (1)
  1. PEGASYS [Suspect]
     Dosage: SUBCUTANEOUS PEG-INTERFERON ALFA 2A (PEGASYS), 180 MCG AND ORAL RIBAVIRIN, 800MG.
     Route: 050
     Dates: start: 20060519, end: 20060608

REACTIONS (2)
  - ABORTION SPONTANEOUS [None]
  - DRUG EXPOSURE DURING PREGNANCY [None]
